FAERS Safety Report 9099246 (Version 2)
Quarter: 2014Q4

REPORT INFORMATION
  Report Type: Spontaneous
  Country: US (occurrence: US)
  Receive Date: 20130213
  Receipt Date: 20141211
  Transmission Date: 20150529
  Serious: Yes (Other)
  Sender: FDA-Public Use
  Company Number: US-ASTRAZENECA-2013SE08065

PATIENT
  Age: 67 Year
  Sex: Female
  Weight: 95.3 kg

DRUGS (31)
  1. VIOXX [Concomitant]
     Active Substance: ROFECOXIB
  2. AMLODIPINE BESYLATE. [Concomitant]
     Active Substance: AMLODIPINE BESYLATE
     Indication: HYPERSENSITIVITY
     Dosage: 10 MG ZYDUS
  3. BETA CAROTENE [Concomitant]
     Indication: VITAMIN SUPPLEMENTATION
  4. LORAZEPAM. [Concomitant]
     Active Substance: LORAZEPAM
  5. CLARITIN [Concomitant]
     Active Substance: LORATADINE
     Indication: ASTHMA
  6. BENYDRAL [Concomitant]
  7. VALIUM [Concomitant]
     Active Substance: DIAZEPAM
     Indication: VERTIGO
  8. VITAMIN B12 [Concomitant]
     Active Substance: CYANOCOBALAMIN
     Indication: VITAMIN SUPPLEMENTATION
  9. NORVASC [Concomitant]
     Active Substance: AMLODIPINE BESYLATE
     Indication: HYPERSENSITIVITY
  10. VISIPAQUE [Concomitant]
     Active Substance: IODIXANOL
     Dosage: 320 STENT
     Route: 042
  11. VITAMIN E [Concomitant]
     Active Substance: .ALPHA.-TOCOPHEROL
     Indication: VITAMIN SUPPLEMENTATION
  12. AVELOX [Concomitant]
     Active Substance: MOXIFLOXACIN HYDROCHLORIDE
  13. ASTHMANEX [Concomitant]
     Indication: ASTHMA
  14. DIOVAN [Concomitant]
     Active Substance: VALSARTAN
     Indication: BLOOD PRESSURE ABNORMAL
  15. BENICAR [Concomitant]
     Active Substance: OLMESARTAN MEDOXOMIL
  16. VIBRAMYCIN [Concomitant]
     Active Substance: DOXYCYCLINE
  17. NASONEX [Concomitant]
     Active Substance: MOMETASONE FUROATE
     Indication: ASTHMA
  18. NEOSPORIN [Concomitant]
     Active Substance: BACITRACIN ZINC\NEOMYCIN SULFATE\POLYMYXIN B SULFATE
     Indication: RASH
  19. FLOVENT [Concomitant]
     Active Substance: FLUTICASONE PROPIONATE
     Dosage: 220
  20. ARIMIDEX [Suspect]
     Active Substance: ANASTROZOLE
     Indication: PULMONARY MASS
     Route: 048
     Dates: start: 20130123
  21. DIPHENHYDRAMINE [Concomitant]
     Active Substance: DIPHENHYDRAMINE
  22. MACRODATIN [Concomitant]
     Dates: start: 20060801
  23. PULMICORT TURBUHALER [Suspect]
     Active Substance: BUDESONIDE
     Route: 055
  24. TOPROL XL [Suspect]
     Active Substance: METOPROLOL SUCCINATE
     Route: 048
  25. FOLIC ACID. [Concomitant]
     Active Substance: FOLIC ACID
     Indication: VITAMIN SUPPLEMENTATION
  26. VITAMIN D [Concomitant]
     Active Substance: CHOLECALCIFEROL
     Indication: VITAMIN SUPPLEMENTATION
  27. PROAIR HFA [Concomitant]
     Active Substance: ALBUTEROL SULFATE
     Indication: ASTHMA
     Route: 055
  28. NORVASC [Concomitant]
     Active Substance: AMLODIPINE BESYLATE
     Indication: HYPERSENSITIVITY
     Dosage: 10 MG GREENSTONE
  29. AMLODIPINE BESYLATE. [Concomitant]
     Active Substance: AMLODIPINE BESYLATE
     Indication: HYPERSENSITIVITY
     Dosage: 5 MG MYLAN
  30. NEURONTIN [Concomitant]
     Active Substance: GABAPENTIN
     Indication: DYSPNOEA
  31. DOXYCYCLINE. [Concomitant]
     Active Substance: DOXYCYCLINE

REACTIONS (11)
  - Pulmonary oedema [Unknown]
  - Mental impairment [Unknown]
  - Eye swelling [Unknown]
  - Swollen tongue [Unknown]
  - Cough [Unknown]
  - Dysphagia [Unknown]
  - Wheezing [Unknown]
  - Lip swelling [Unknown]
  - Dyspnoea [Unknown]
  - Chest discomfort [Unknown]
  - Vertigo [Unknown]

NARRATIVE: CASE EVENT DATE: 20130123
